FAERS Safety Report 9281232 (Version 1)
Quarter: 2013Q2

REPORT INFORMATION
  Report Type: Report from Study
  Country: US (occurrence: US)
  Receive Date: 20130509
  Receipt Date: 20130509
  Transmission Date: 20140414
  Serious: Yes (Hospitalization, Other)
  Sender: FDA-Public Use
  Company Number: US-ABBOTT-13P-163-1083429-00

PATIENT
  Age: 55 Year
  Sex: Male
  Weight: 73.09 kg

DRUGS (4)
  1. CREON [Suspect]
     Indication: PANCREATIC INSUFFICIENCY
     Dates: start: 2006
  2. LOSARTAN [Concomitant]
     Indication: HYPERTENSION
  3. NOVOLOG [Concomitant]
     Indication: DIABETES MELLITUS
  4. LANTUS [Concomitant]
     Indication: DIABETES MELLITUS

REACTIONS (7)
  - Joint injury [Recovered/Resolved]
  - Rotator cuff syndrome [Recovered/Resolved]
  - Back pain [Recovering/Resolving]
  - Cartilage atrophy [Unknown]
  - Fall [Recovered/Resolved]
  - Back pain [Recovering/Resolving]
  - Localised oedema [Unknown]
